FAERS Safety Report 19095562 (Version 2)
Quarter: 2022Q3

REPORT INFORMATION
  Report Type: Spontaneous
  Country: BR (occurrence: BR)
  Receive Date: 20210406
  Receipt Date: 20220722
  Transmission Date: 20221027
  Serious: Yes (Other)
  Sender: FDA-Public Use
  Company Number: BR-002147023-NVSC2021BR067382

PATIENT
  Age: 83 Year
  Sex: Female
  Weight: 61 kg

DRUGS (4)
  1. XOLAIR [Suspect]
     Active Substance: OMALIZUMAB
     Indication: Asthma
     Dosage: 1 APPLICATION OF 150 MG, QMO (INJECTION THE BACK OF THE ARM)
     Route: 058
     Dates: start: 202006
  2. XOLAIR [Suspect]
     Active Substance: OMALIZUMAB
     Route: 065
  3. BUDESONIDE\FORMOTEROL FUMARATE [Concomitant]
     Active Substance: BUDESONIDE\FORMOTEROL FUMARATE
     Indication: Asthma
     Dosage: UNK, BID (MORNING AND AT NIGHT)
     Route: 055
     Dates: start: 1996
  4. ALBUTEROL [Concomitant]
     Active Substance: ALBUTEROL
     Indication: Asthma
     Dosage: 200 UG (2 SPRAYS) (IF GET SHORT OF BREATH AND TIRED)
     Route: 055
     Dates: start: 2020

REACTIONS (5)
  - Abdominal pain [Recovering/Resolving]
  - Diverticulum [Unknown]
  - Pulmonary mass [Not Recovered/Not Resolved]
  - Immunisation reaction [Recovered/Resolved]
  - Fatigue [Unknown]

NARRATIVE: CASE EVENT DATE: 20201001
